FAERS Safety Report 6398563-2 (Version None)
Quarter: 2009Q4

REPORT INFORMATION
  Report Type: 
  Country: None (occurrence: None)
  Receive Date: 20091013
  Receipt Date: 20091001
  Transmission Date: 20100525
  Serious: Yes (Hospitalization)
  Sender: FDA-Public Use
  Company Number: NL-PFIZER INC-2009242401

PATIENT
  Age: 78 Year

DRUGS (12)
  1. EXEMESTANE [Suspect]
     Indication: BREAST CANCER
     Dosage: 25 MG, 1X/DAY
     Route: 048
     Dates: start: 20040816
  2. AMOXICILLIN AND CLAVULANATE POTASSIUM [Concomitant]
     Dosage: UNK
     Route: 048
     Dates: start: 20090519, end: 20090522
  3. CIPROXIN [Concomitant]
     Dosage: UNK
     Dates: start: 20090515, end: 20090519
  4. ENALAPRIL [Concomitant]
     Dosage: UNK
     Route: 048
     Dates: start: 20090519, end: 20090617
  5. ENALAPRIL MALEATE AND HYDROCHLOROTHIAZIDE [Concomitant]
     Dosage: UNK
     Route: 048
     Dates: start: 20060125, end: 20090519
  6. FRAGMIN [Concomitant]
     Dosage: UNK
     Dates: start: 20090515, end: 20090519
  7. MORPHINE [Concomitant]
     Dosage: UNK
     Dates: start: 20090403, end: 20090514
  8. OMEPRAZOLE [Concomitant]
     Dosage: UNK
     Route: 048
     Dates: start: 20090514, end: 20090617
  9. PENICILLINE [Concomitant]
     Dosage: UNK
     Route: 048
     Dates: start: 20090515, end: 20090519
  10. SLOW-K [Concomitant]
     Dosage: UNK
     Route: 048
     Dates: start: 20090516, end: 20090519
  11. ASACOL [Concomitant]
     Dosage: UNK
     Route: 048
     Dates: start: 20071231
  12. PARACETAMOL [Concomitant]

REACTIONS (1)
  - TRANSIENT ISCHAEMIC ATTACK [None]
